FAERS Safety Report 6363372-7 (Version None)
Quarter: 2009Q3

REPORT INFORMATION
  Report Type: 
  Country: None (occurrence: None)
  Receive Date: 20090919
  Receipt Date: 20090626
  Transmission Date: 20100115
  Serious: No
  Sender: FDA-Public Use
  Company Number: US-ABBOTT-09P-163-0582336-00

PATIENT
  Sex: Female
  Weight: 90.8 kg

DRUGS (3)
  1. HUMIRA [Suspect]
     Indication: PSORIASIS
     Route: 058
     Dates: start: 20090501, end: 20090626
  2. CELEXA [Concomitant]
     Indication: DEPRESSION
     Dates: start: 20090401
  3. FLONASE [Concomitant]
     Indication: ALLERGIC SINUSITIS
     Dates: start: 20090401

REACTIONS (3)
  - DRUG DOSE OMISSION [None]
  - INAPPROPRIATE SCHEDULE OF DRUG ADMINISTRATION [None]
  - VISION BLURRED [None]
